FAERS Safety Report 11092829 (Version 1)
Quarter: 2015Q2

REPORT INFORMATION
  Report Type: Spontaneous
  Country: FR (occurrence: FR)
  Receive Date: 20150506
  Receipt Date: 20150506
  Transmission Date: 20150821
  Serious: Yes (Death)
  Sender: FDA-Public Use
  Company Number: FR-JNJFOC-20150419240

PATIENT
  Age: 59 Year
  Sex: Female

DRUGS (3)
  1. XEPLION [Suspect]
     Active Substance: PALIPERIDONE PALMITATE
     Indication: SCHIZOPHRENIA
     Dosage: 100 OR 150 MG.
     Route: 030
     Dates: start: 201504
  2. NOCTAMIDE [Concomitant]
     Active Substance: LORMETAZEPAM
     Route: 065
  3. METHYLDOPA. [Concomitant]
     Active Substance: METHYLDOPA

REACTIONS (3)
  - Erythema [Unknown]
  - Death [Fatal]
  - Presyncope [Unknown]

NARRATIVE: CASE EVENT DATE: 201504
